FAERS Safety Report 25602211 (Version 1)
Quarter: 2025Q3

REPORT INFORMATION
  Report Type: Spontaneous
  Country: US (occurrence: US)
  Receive Date: 20250724
  Receipt Date: 20250724
  Transmission Date: 20251021
  Serious: No
  Sender: NOBELPHARMA
  Company Number: US-NPA-2025-AER-01237

PATIENT
  Sex: Female
  Weight: 71.2 kg

DRUGS (8)
  1. HYFTOR [Suspect]
     Active Substance: SIROLIMUS
     Indication: Vascular malformation
     Dosage: APPLY TO SKIN
     Route: 061
     Dates: start: 20250508
  2. ACETAMINOPHEN [Concomitant]
     Active Substance: ACETAMINOPHEN
  3. ASPIRIN [Concomitant]
     Active Substance: ASPIRIN
  4. FAMOTIDINE [Concomitant]
     Active Substance: FAMOTIDINE
  5. FLUOXETINE [Concomitant]
     Active Substance: FLUOXETINE HYDROCHLORIDE
  6. HYDROXYZINE [Concomitant]
     Active Substance: HYDROXYZINE HYDROCHLORIDE
  7. IBUPROFEN [Concomitant]
     Active Substance: IBUPROFEN
  8. TRETINOIN [Concomitant]
     Active Substance: TRETINOIN

REACTIONS (3)
  - Application site irritation [Unknown]
  - Off label use [Unknown]
  - Off label use [Unknown]
